FAERS Safety Report 15392771 (Version 1)
Quarter: 2018Q3

REPORT INFORMATION
  Report Type: Spontaneous
  Country: US (occurrence: US)
  Receive Date: 20180911
  Receipt Date: 20180911
  Transmission Date: 20181010
  Serious: Yes (Death)
  Sender: FDA-Public Use
  Company Number: None

PATIENT
  Sex: Female

DRUGS (6)
  1. HYDROXYZINE [Concomitant]
     Active Substance: HYDROXYZINE HYDROCHLORIDE
  2. OPDIVO [Suspect]
     Active Substance: NIVOLUMAB
     Indication: HEPATIC CANCER
     Dosage: ?          OTHER FREQUENCY:EVERY 14 DAYS;?
     Route: 042
     Dates: start: 20180511
  3. OXYCODONE [Concomitant]
     Active Substance: OXYCODONE
  4. SPRIONOLACTONE [Concomitant]
  5. ALDACTONE [Concomitant]
     Active Substance: SPIRONOLACTONE
  6. LASIX [Concomitant]
     Active Substance: FUROSEMIDE

REACTIONS (1)
  - Death [None]
